FAERS Safety Report 9330654 (Version 1)
Quarter: 2013Q2

REPORT INFORMATION
  Report Type: Spontaneous
  Country: US (occurrence: None)
  Receive Date: 20130604
  Receipt Date: 20130604
  Transmission Date: 20140414
  Serious: Yes (Hospitalization)
  Sender: FDA-Public Use
  Company Number: None

PATIENT
  Age: 52 Year
  Sex: Male
  Weight: 90.7 kg

DRUGS (4)
  1. AMOXICILLIN [Suspect]
     Indication: PAIN
     Route: 048
     Dates: start: 20130407, end: 20130407
  2. AMOXICILLIN [Suspect]
     Indication: EAR INFECTION
     Route: 048
     Dates: start: 20130407, end: 20130407
  3. AMOXICILLIN [Suspect]
     Route: 048
     Dates: start: 20130407, end: 20130407
  4. AMOXICILLIN [Suspect]
     Indication: PYREXIA
     Route: 048
     Dates: start: 20130407, end: 20130407

REACTIONS (5)
  - Paraesthesia [None]
  - Pyrexia [None]
  - Chills [None]
  - Pain [None]
  - Rash [None]
